FAERS Safety Report 10515443 (Version 2)
Quarter: 2014Q4

REPORT INFORMATION
  Report Type: Spontaneous
  Country: US (occurrence: US)
  Receive Date: 20141014
  Receipt Date: 20141218
  Transmission Date: 20150528
  Serious: Yes (Other)
  Sender: FDA-Public Use
  Company Number: US-RB-069328-14

PATIENT
  Age: 81 Year
  Sex: Male

DRUGS (1)
  1. MUCINEX DM MAXIMUM STRENGTH [Suspect]
     Active Substance: DEXTROMETHORPHAN HYDROBROMIDE\GUAIFENESIN
     Indication: COUGH
     Dosage: 1 EVERY 12 HOURS, TOOK A TOTAL OF TWO DOSES IN 2 DAYS (01-OCT-2014 AND 02-OCT-2014)
     Route: 065
     Dates: start: 20141001

REACTIONS (2)
  - Atrial fibrillation [Recovered/Resolved]
  - Drug ineffective [Not Recovered/Not Resolved]

NARRATIVE: CASE EVENT DATE: 20141002
